FAERS Safety Report 6883192-4 (Version None)
Quarter: 2010Q3

REPORT INFORMATION
  Report Type: 
  Country: None (occurrence: None)
  Receive Date: 20100727
  Receipt Date: 20071004
  Transmission Date: 20110219
  Serious: Yes (Hospitalization, Other)
  Sender: FDA-Public Use
  Company Number: US-PFIZER INC-2006118416

PATIENT
  Sex: Female
  Weight: 77.1 kg

DRUGS (2)
  1. CELEBREX [Suspect]
     Indication: PAIN
     Dosage: 1 OR 2 DAILY
     Route: 048
     Dates: start: 20000803
  2. VIOXX [Suspect]
     Route: 048
     Dates: start: 19990801, end: 20000801

REACTIONS (1)
  - DEEP VEIN THROMBOSIS [None]
